FAERS Safety Report 12390249 (Version 2)
Quarter: 2017Q1

REPORT INFORMATION
  Report Type: Report from Study
  Country: FR (occurrence: FR)
  Receive Date: 20160520
  Receipt Date: 20170302
  Transmission Date: 20170428
  Serious: Yes (Other)
  Sender: FDA-Public Use
  Company Number: FR-TEVA-660993ACC

PATIENT
  Age: 72 Year
  Sex: Male

DRUGS (5)
  1. TREANDA [Suspect]
     Active Substance: BENDAMUSTINE HYDROCHLORIDE
     Indication: B-CELL SMALL LYMPHOCYTIC LYMPHOMA
     Route: 042
     Dates: start: 20150208, end: 20150719
  2. ARZERRA [Suspect]
     Active Substance: OFATUMUMAB
     Indication: B-CELL SMALL LYMPHOCYTIC LYMPHOMA
     Dosage: 300 MG, TOTAL DOSE (PER PROTOCOL)
     Route: 041
     Dates: start: 20150130, end: 20150130
  3. ARZERRA [Suspect]
     Active Substance: OFATUMUMAB
     Dosage: 1000 MG, 1 TIME PER 1 CYCLIC
     Route: 041
     Dates: start: 20150207, end: 20150717
  4. METHYLPREDNISOLONE. [Concomitant]
     Active Substance: METHYLPREDNISOLONE
     Route: 065
     Dates: start: 20150207, end: 20150718
  5. METHYLPREDNISOLONE. [Concomitant]
     Active Substance: METHYLPREDNISOLONE
     Indication: B-CELL SMALL LYMPHOCYTIC LYMPHOMA
     Dosage: (PER PROTOCOL)
     Route: 042
     Dates: start: 20150130, end: 20150130

REACTIONS (1)
  - Richter^s syndrome [Not Recovered/Not Resolved]

NARRATIVE: CASE EVENT DATE: 20160309
